FAERS Safety Report 12677897 (Version 1)
Quarter: 2016Q3

REPORT INFORMATION
  Report Type: Spontaneous
  Country: US (occurrence: US)
  Receive Date: 20160823
  Receipt Date: 20160823
  Transmission Date: 20161109
  Serious: No
  Sender: FDA-Public Use
  Company Number: US-TARO-2016TAR00163

PATIENT
  Age: 64 Year
  Sex: Male
  Weight: 85.71 kg

DRUGS (14)
  1. AMIODARONE HCL TABLET 200 MG [Suspect]
     Active Substance: AMIODARONE HYDROCHLORIDE
     Indication: ATRIAL FIBRILLATION
     Dosage: 1 TABLETS, 2X/DAY
     Route: 048
     Dates: start: 201601
  2. COQ10 [Concomitant]
     Active Substance: UBIDECARENONE
     Dosage: UNK, 1X/DAY
  3. LASIX [Concomitant]
     Active Substance: FUROSEMIDE
     Dosage: UNK, AS NEEDED
  4. JUICE PLUS [Concomitant]
     Active Substance: DIETARY SUPPLEMENT
     Dosage: UNK, 1X/DAY
  5. WARFARIN SODIUM TABLETS USP 5MG [Suspect]
     Active Substance: WARFARIN SODIUM
     Dosage: 5 MG, 1X/DAY
     Route: 048
     Dates: start: 20160201, end: 201602
  6. BIOPLASMA [Concomitant]
     Active Substance: HOMEOPATHICS
     Dosage: UNK, 1X/DAY
  7. OMEGA 3 [Concomitant]
     Active Substance: OMEGA-3 FATTY ACIDS
     Dosage: UNK, 1X/DAY
  8. WARFARIN SODIUM TABLETS USP 5MG [Suspect]
     Active Substance: WARFARIN SODIUM
     Dosage: 7.5 MG, 1X/DAY
     Route: 048
     Dates: start: 201602, end: 201602
  9. COZAAR [Concomitant]
     Active Substance: LOSARTAN POTASSIUM
     Dosage: UNK, 2X/DAY
  10. WARFARIN SODIUM TABLETS USP 5MG [Suspect]
     Active Substance: WARFARIN SODIUM
     Indication: ATRIAL FIBRILLATION
     Dosage: 5 MG, 1X/DAY
     Route: 048
     Dates: start: 201602
  11. COREG [Concomitant]
     Active Substance: CARVEDILOL
     Dosage: UNK, 2X/DAY
  12. POTASSIUM [Concomitant]
     Active Substance: POTASSIUM
     Dosage: UNK, 1X/DAY
  13. HAWTHORN [Concomitant]
     Active Substance: CRATAEGUS LAEVIGATA FRUIT
     Dosage: UNK, 1X/DAY
  14. MAGNESIUM [Concomitant]
     Active Substance: MAGNESIUM
     Dosage: UNK, 1X/DAY

REACTIONS (2)
  - International normalised ratio fluctuation [Not Recovered/Not Resolved]
  - Drug interaction [Not Recovered/Not Resolved]

NARRATIVE: CASE EVENT DATE: 201602
